FAERS Safety Report 4880931-9 (Version None)
Quarter: 2005Q4

REPORT INFORMATION
  Report Type: 
  Country: None (occurrence: None)
  Receive Date: 20051223
  Receipt Date: 20051026
  Transmission Date: 20060501
  Serious: No
  Sender: FDA-Public Use
  Company Number: 05P-163-0315488-00

PATIENT
  Age: 68 Year
  Sex: Female
  Weight: 47.6277 kg

DRUGS (7)
  1. HUMIRA [Suspect]
     Indication: RHEUMATOID ARTHRITIS
     Dosage: 40 MG, 1 IN 2 WK, SUBCUTANEOUS
     Route: 058
     Dates: start: 20040801
  2. ATORVASTATIN CALCIUM [Concomitant]
  3. FOLIC ACID [Concomitant]
  4. CALCIUM GLUCONATE [Concomitant]
  5. ERGOCALCIFEROL [Concomitant]
  6. ASCORBIC ACID [Concomitant]
  7. CENTRUM SILVER [Concomitant]

REACTIONS (2)
  - DYSPHONIA [None]
  - NASOPHARYNGITIS [None]
